FAERS Safety Report 11787978 (Version 2)
Quarter: 2016Q1

REPORT INFORMATION
  Report Type: Report from Study
  Country: US (occurrence: US)
  Receive Date: 20151130
  Receipt Date: 20160208
  Transmission Date: 20160525
  Serious: Yes (Other)
  Sender: FDA-Public Use
  Company Number: US-GILEAD-2015-0184912

PATIENT
  Age: 82 Year
  Sex: Male

DRUGS (21)
  1. AMBRISENTAN [Suspect]
     Active Substance: AMBRISENTAN
     Indication: PULMONARY HYPERTENSION
     Dosage: 5 MG, QD
     Route: 065
     Dates: start: 20150226
  2. ALPRAZOLAM. [Concomitant]
     Active Substance: ALPRAZOLAM
  3. CLOPIDOGREL [Concomitant]
     Active Substance: CLOPIDOGREL BISULFATE
  4. MULTIVITAMINS [Concomitant]
     Active Substance: VITAMINS
  5. ALVESCO [Concomitant]
     Active Substance: CICLESONIDE
  6. GABAPENTIN. [Concomitant]
     Active Substance: GABAPENTIN
  7. TYLENOL                            /00435101/ [Concomitant]
  8. FUROSEMIDE. [Concomitant]
     Active Substance: FUROSEMIDE
  9. METOPROLOL. [Concomitant]
     Active Substance: METOPROLOL
  10. ASPIRIN                            /00002701/ [Concomitant]
     Active Substance: ASPIRIN
  11. KETOCONAZOLE. [Concomitant]
     Active Substance: KETOCONAZOLE
  12. TRIAMCINOLONE [Concomitant]
     Active Substance: TRIAMCINOLONE
  13. LIPITOR [Concomitant]
     Active Substance: ATORVASTATIN CALCIUM
  14. TERBINAFINE. [Concomitant]
     Active Substance: TERBINAFINE
  15. TOPAMAX [Concomitant]
     Active Substance: TOPIRAMATE
  16. BETAMETH DIPROPIONATE [Concomitant]
  17. LISINOPRIL. [Concomitant]
     Active Substance: LISINOPRIL
  18. OMEGA 3                            /01333901/ [Concomitant]
     Active Substance: FISH OIL\TOCOPHEROL
  19. PANTOPRAZOLE [Concomitant]
     Active Substance: PANTOPRAZOLE SODIUM
  20. CALCIUM [Concomitant]
     Active Substance: CALCIUM
  21. KEPPRA [Concomitant]
     Active Substance: LEVETIRACETAM

REACTIONS (1)
  - Cataract [Recovered/Resolved]
